FAERS Safety Report 11047294 (Version 3)
Quarter: 2015Q2

REPORT INFORMATION
  Report Type: Spontaneous
  Country: AU (occurrence: AU)
  Receive Date: 20150420
  Receipt Date: 20150623
  Transmission Date: 20150821
  Serious: Yes (Death, Hospitalization)
  Sender: FDA-Public Use
  Company Number: AU-SA-2015SA047837

PATIENT
  Age: 56 Year
  Sex: Male
  Weight: 74 kg

DRUGS (9)
  1. CLEXANE [Suspect]
     Active Substance: ENOXAPARIN SODIUM
     Indication: DEEP VEIN THROMBOSIS
     Route: 065
     Dates: start: 20101125, end: 20101129
  2. CLEXANE [Suspect]
     Active Substance: ENOXAPARIN SODIUM
     Indication: URTICARIA
     Route: 065
     Dates: start: 20101125, end: 20101129
  3. WARFARIN [Suspect]
     Active Substance: WARFARIN
     Route: 065
     Dates: start: 20101219, end: 20101220
  4. WARFARIN [Suspect]
     Active Substance: WARFARIN
     Route: 065
     Dates: start: 20101213
  5. HEPARIN [Suspect]
     Active Substance: HEPARIN SODIUM
     Route: 042
     Dates: start: 20101207, end: 20101209
  6. WARFARIN [Suspect]
     Active Substance: WARFARIN
     Route: 065
     Dates: start: 20101217, end: 20101217
  7. HEPARIN [Suspect]
     Active Substance: HEPARIN SODIUM
     Route: 042
     Dates: start: 20101213, end: 20101216
  8. HEPARIN [Suspect]
     Active Substance: HEPARIN SODIUM
     Route: 042
     Dates: start: 20101129, end: 20101202
  9. WARFARIN [Suspect]
     Active Substance: WARFARIN
     Route: 065
     Dates: start: 20101218, end: 20101218

REACTIONS (8)
  - Contraindicated drug administered [Unknown]
  - Heparin-induced thrombocytopenia [Fatal]
  - Vomiting [Fatal]
  - Deep vein thrombosis [Fatal]
  - Pulmonary embolism [Fatal]
  - Gangrene [Fatal]
  - Drug hypersensitivity [Fatal]
  - Urticaria [Fatal]

NARRATIVE: CASE EVENT DATE: 201011
